FAERS Safety Report 9953216 (Version 1)
Quarter: 2014Q1

REPORT INFORMATION
  Report Type: Report from Study
  Country: US (occurrence: US)
  Receive Date: 20140304
  Receipt Date: 20140304
  Transmission Date: 20141002
  Serious: No
  Sender: FDA-Public Use
  Company Number: US-ABBVIE-13P-163-1077229-00

PATIENT
  Age: 24 Year
  Sex: Female

DRUGS (7)
  1. HUMIRA [Suspect]
     Indication: COLITIS ULCERATIVE
     Dates: start: 20130202
  2. HUMIRA [Suspect]
  3. IBUPROFEN [Suspect]
     Indication: TOOTHACHE
     Dates: start: 201303
  4. UNKNOWN INSULIN [Concomitant]
     Indication: PRODUCT USED FOR UNKNOWN INDICATION
     Dosage: 3-6 UNITS AT EACH MEAL
  5. MULTIVITAMIN [Concomitant]
     Indication: PRODUCT USED FOR UNKNOWN INDICATION
  6. IRON COMPOUND [Concomitant]
     Indication: PRODUCT USED FOR UNKNOWN INDICATION
  7. B-COMPLEX [Concomitant]
     Indication: PRODUCT USED FOR UNKNOWN INDICATION

REACTIONS (2)
  - Colitis [Not Recovered/Not Resolved]
  - Toothache [Not Recovered/Not Resolved]
